FAERS Safety Report 20448675 (Version 5)
Quarter: 2022Q2

REPORT INFORMATION
  Report Type: Spontaneous
  Country: CN (occurrence: CN)
  Receive Date: 20220209
  Receipt Date: 20220509
  Transmission Date: 20220721
  Serious: Yes (Hospitalization, Other)
  Sender: FDA-Public Use
  Company Number: CN-Accord-252263

PATIENT
  Age: 31 Year
  Sex: Female
  Weight: 54.00 kg

DRUGS (3)
  1. DOCETAXEL [Suspect]
     Active Substance: DOCETAXEL
     Indication: Invasive breast carcinoma
     Dosage: SINGLE
     Route: 041
     Dates: start: 20211217, end: 20211217
  2. TRASTUZUMAB [Suspect]
     Active Substance: TRASTUZUMAB
     Indication: Invasive breast carcinoma
     Dosage: STRENGTH: 150 MILLIGRAM/SINGLE
     Route: 041
     Dates: start: 20211217, end: 20211217
  3. PYROTINIB [Suspect]
     Active Substance: PYROTINIB
     Indication: Invasive breast carcinoma
     Route: 048
     Dates: start: 20211217, end: 20220106

REACTIONS (4)
  - Aspartate aminotransferase increased [Recovered/Resolved]
  - Alanine aminotransferase increased [Recovered/Resolved]
  - Gamma-glutamyltransferase increased [Not Recovered/Not Resolved]
  - Bilirubin conjugated increased [Recovered/Resolved]

NARRATIVE: CASE EVENT DATE: 20220106
